FAERS Safety Report 20684617 (Version 4)
Quarter: 2023Q1

REPORT INFORMATION
  Report Type: Report from Study
  Country: US (occurrence: US)
  Receive Date: 20220407
  Receipt Date: 20230220
  Transmission Date: 20230418
  Serious: Yes (Other)
  Sender: FDA-Public Use
  Company Number: US-TAKEDA-2022TUS021464

PATIENT
  Sex: Female

DRUGS (3)
  1. HUMAN IMMUNOGLOBULIN G [Suspect]
     Active Substance: HUMAN IMMUNOGLOBULIN G
     Indication: Immunodeficiency common variable
     Dosage: UNK
     Route: 065
  2. COVID-19 VACCINE NOS [Suspect]
     Active Substance: COVID-19 VACCINE NOS
     Indication: Product used for unknown indication
     Route: 065
  3. VITAMIN B12 [Concomitant]
     Active Substance: CYANOCOBALAMIN
     Dosage: UNK
     Route: 065

REACTIONS (34)
  - Transient ischaemic attack [Unknown]
  - Autoimmune thyroiditis [Unknown]
  - Neoplasm malignant [Unknown]
  - Normal pressure hydrocephalus [Unknown]
  - Abscess oral [Unknown]
  - Pneumonia bacterial [Unknown]
  - Pneumonitis [Unknown]
  - Pseudomonas infection [Unknown]
  - Chronic obstructive pulmonary disease [Unknown]
  - Asthma [Unknown]
  - Lung hernia [Unknown]
  - Weight decreased [Unknown]
  - Emphysema [Unknown]
  - Obstructive airways disorder [Unknown]
  - Alopecia [Unknown]
  - Arthritis [Unknown]
  - Gastrooesophageal reflux disease [Unknown]
  - Lung disorder [Unknown]
  - Fascia release [Unknown]
  - Plantar fasciitis [Unknown]
  - Thyroid disorder [Unknown]
  - Tooth disorder [Unknown]
  - Dysphagia [Unknown]
  - Antinuclear antibody increased [Unknown]
  - Cough [Unknown]
  - Weight increased [Not Recovered/Not Resolved]
  - Fatigue [Not Recovered/Not Resolved]
  - Hyperhidrosis [Not Recovered/Not Resolved]
  - Urticaria [Unknown]
  - COVID-19 immunisation [Unknown]
  - COVID-19 [Unknown]
  - Back pain [Unknown]
  - Pain in extremity [Unknown]
  - Dysphonia [Unknown]
